FAERS Safety Report 14432640 (Version 5)
Quarter: 2018Q2

REPORT INFORMATION
  Report Type: Spontaneous
  Country: US (occurrence: US)
  Receive Date: 20180124
  Receipt Date: 20180523
  Transmission Date: 20180711
  Serious: Yes (Hospitalization, Disabling)
  Sender: FDA-Public Use
  Company Number: US-ELI_LILLY_AND_COMPANY-US201801006014

PATIENT
  Age: 74 Year
  Sex: Male

DRUGS (8)
  1. NORCO [Suspect]
     Active Substance: ACETAMINOPHEN\HYDROCODONE BITARTRATE
     Indication: PAIN IN EXTREMITY
     Dosage: UNK, UNKNOWN
     Route: 065
  2. HUMULIN R [Suspect]
     Active Substance: INSULIN HUMAN
     Indication: TYPE 2 DIABETES MELLITUS
     Dosage: 100 U, TID (SLIDING SCALE)
     Route: 058
  3. HUMULIN N [Suspect]
     Active Substance: INSULIN HUMAN
     Indication: TYPE 2 DIABETES MELLITUS
     Dosage: UNK, UNKNOWN
     Route: 058
  4. HUMULIN R [Suspect]
     Active Substance: INSULIN HUMAN
     Dosage: ABOUT 20 U, TID (SLIDING SCALE)
     Route: 058
  5. HUMULIN R [Suspect]
     Active Substance: INSULIN HUMAN
     Dosage: ABOUT 20 U, TID (SLIDING SCALE)
     Route: 058
  6. HUMULIN R [Suspect]
     Active Substance: INSULIN HUMAN
     Indication: TYPE 2 DIABETES MELLITUS
     Dosage: 150 U, TID (SLIDING SCALE)
     Route: 058
     Dates: start: 1990
  7. HUMULIN 70/30 [Suspect]
     Active Substance: INSULIN HUMAN
     Indication: TYPE 2 DIABETES MELLITUS
     Dosage: UNK, UNKNOWN
     Route: 058
  8. NORCO [Suspect]
     Active Substance: ACETAMINOPHEN\HYDROCODONE BITARTRATE
     Indication: ARTHRALGIA

REACTIONS (23)
  - Gait inability [Not Recovered/Not Resolved]
  - Thrombosis [Unknown]
  - Wrong technique in product usage process [Not Recovered/Not Resolved]
  - Pneumonia [Unknown]
  - Arthralgia [Not Recovered/Not Resolved]
  - Sleep disorder due to general medical condition, insomnia type [Unknown]
  - Tremor [Not Recovered/Not Resolved]
  - Injection site discolouration [Unknown]
  - Diabetic neuropathy [Unknown]
  - Dysstasia [Not Recovered/Not Resolved]
  - Blood glucose increased [Recovered/Resolved]
  - Coagulopathy [Unknown]
  - Drug use disorder [Recovered/Resolved]
  - Localised infection [Unknown]
  - Pain [Unknown]
  - Visual impairment [Not Recovered/Not Resolved]
  - Fat tissue increased [Not Recovered/Not Resolved]
  - Expired product administered [Unknown]
  - Angiopathy [Not Recovered/Not Resolved]
  - Blood glucose abnormal [Unknown]
  - Pain in extremity [Unknown]
  - Blood glucose decreased [Recovered/Resolved]
  - Incorrect product formulation administered [Recovered/Resolved]

NARRATIVE: CASE EVENT DATE: 1992
